FAERS Safety Report 4546314-6 (Version None)
Quarter: 2005Q1

REPORT INFORMATION
  Report Type: 
  Country: None (occurrence: None)
  Receive Date: 20050103
  Receipt Date: 20041221
  Transmission Date: 20050727
  Serious: Yes (Other)
  Sender: FDA-Public Use
  Company Number: 2004074873

PATIENT
  Age: 50 Year
  Sex: Female
  Weight: 72.5755 kg

DRUGS (5)
  1. VFEND [Suspect]
     Indication: BRONCHOPULMONARY ASPERGILLOSIS
     Dosage: 400 MG (200 MG, 2 IN 1 D)
     Dates: start: 20040507, end: 20040818
  2. SERETIDE MITE (FLUTICASONE PROPIONATE SALMETEROL XINAFOATE) [Suspect]
     Indication: ILL-DEFINED DISORDER
     Dosage: INHALATION
  3. RABEPRAZOLE SODIUM [Concomitant]
  4. MEDROXYPROGESTERONE ACETATE [Concomitant]
  5. ESTROPIPATE [Concomitant]

REACTIONS (9)
  - BALANCE DISORDER [None]
  - CHEST DISCOMFORT [None]
  - COORDINATION ABNORMAL [None]
  - DIFFICULTY IN WALKING [None]
  - DIZZINESS [None]
  - FALL [None]
  - MUSCLE DISORDER [None]
  - POLYNEUROPATHY [None]
  - PULMONARY CONGESTION [None]
